FAERS Safety Report 5378118-9 (Version None)
Quarter: 2007Q3

REPORT INFORMATION
  Report Type: 
  Country: None (occurrence: None)
  Receive Date: 20070705
  Receipt Date: 20070620
  Transmission Date: 20080115
  Serious: Yes (Other)
  Sender: FDA-Public Use
  Company Number: PHEH2007US09163

PATIENT
  Age: 57 Year
  Sex: Female
  Weight: 68.027 kg

DRUGS (8)
  1. COMBIPATCH [Suspect]
     Indication: MENOPAUSE
     Route: 062
     Dates: start: 20021114, end: 20021231
  2. ORAL CONTRACEPTIVE NOS [Suspect]
     Dosage: UNK, UNK
     Route: 048
     Dates: start: 19650101, end: 19720101
  3. PREMPRO [Suspect]
     Indication: MENOPAUSE
     Dates: start: 19960101, end: 19990101
  4. ESTRATEST [Suspect]
  5. PROVERA [Suspect]
     Indication: MENOPAUSE
     Dates: start: 19990601, end: 20050301
  6. TAMOXIFEN CITRATE [Concomitant]
  7. ARIMIDEX [Concomitant]
     Dates: start: 20050601
  8. ESTRACE [Suspect]

REACTIONS (15)
  - BIOPSY [None]
  - BIOPSY SITE UNSPECIFIED ABNORMAL [None]
  - BONE DENSITY DECREASED [None]
  - BREAST CANCER IN SITU [None]
  - DEPRESSION [None]
  - ERYTHEMA [None]
  - HOT FLUSH [None]
  - LIGAMENT SPRAIN [None]
  - MALIGNANT BREAST LUMP REMOVAL [None]
  - NECK INJURY [None]
  - RASH [None]
  - ROAD TRAFFIC ACCIDENT [None]
  - SKIN BURNING SENSATION [None]
  - SKIN REACTION [None]
  - TOOTH EXTRACTION [None]
